FAERS Safety Report 25031909 (Version 5)
Quarter: 2025Q2

REPORT INFORMATION
  Report Type: Report from Study
  Country: US (occurrence: US)
  Receive Date: 20250303
  Receipt Date: 20250620
  Transmission Date: 20250717
  Serious: No
  Sender: SUNOVION
  Company Number: US-SUMITOMO PHARMA SWITZERLAND GMBH-2025SPA001840

PATIENT

DRUGS (1)
  1. ORGOVYX [Suspect]
     Active Substance: RELUGOLIX
     Indication: Prostate cancer
     Dosage: 120 MG, QD
     Route: 048
     Dates: start: 20250131

REACTIONS (12)
  - Emotional disorder [Unknown]
  - Dry skin [Unknown]
  - Joint noise [Unknown]
  - Dyspnoea [Unknown]
  - Dizziness [Unknown]
  - Arthralgia [Unknown]
  - Fatigue [Unknown]
  - Hot flush [Unknown]
  - Myalgia [Unknown]
  - Weight increased [Unknown]
  - Asthenia [Unknown]
  - Incorrect dose administered [Unknown]
